FAERS Safety Report 20735405 (Version 1)
Quarter: 2022Q2

REPORT INFORMATION
  Report Type: Spontaneous
  Country: US (occurrence: None)
  Receive Date: 20220421
  Receipt Date: 20220421
  Transmission Date: 20220721
  Serious: Yes (Other)
  Sender: FDA-Public Use
  Company Number: None

PATIENT
  Age: 58 Year
  Sex: Female
  Weight: 74.25 kg

DRUGS (1)
  1. LEVOTHYROXINE [Suspect]
     Active Substance: LEVOTHYROXINE
     Indication: Thyroidectomy
     Route: 048

REACTIONS (12)
  - Arthralgia [None]
  - Myalgia [None]
  - Blood pressure increased [None]
  - Palpitations [None]
  - Depressed level of consciousness [None]
  - Depression [None]
  - Insomnia [None]
  - Anxiety [None]
  - Weight increased [None]
  - Constipation [None]
  - Laboratory test abnormal [None]
  - Blood thyroid stimulating hormone increased [None]

NARRATIVE: CASE EVENT DATE: 20220101
